FAERS Safety Report 24527253 (Version 1)
Quarter: 2024Q4

REPORT INFORMATION
  Report Type: Report from Study
  Country: US (occurrence: US)
  Receive Date: 20241021
  Receipt Date: 20241021
  Transmission Date: 20250114
  Serious: No
  Sender: ROCHE
  Company Number: US-ROCHE-3516873

PATIENT
  Age: 45 Year
  Sex: Male

DRUGS (2)
  1. COTELLIC [Suspect]
     Active Substance: COBIMETINIB
     Indication: Cholangiocarcinoma
     Route: 065
     Dates: start: 20240130
  2. XARELTO [Concomitant]
     Active Substance: RIVAROXABAN

REACTIONS (5)
  - Off label use [Unknown]
  - Skin exfoliation [Not Recovered/Not Resolved]
  - Acne [Unknown]
  - Blood albumin decreased [Unknown]
  - Swelling [Unknown]

NARRATIVE: CASE EVENT DATE: 20240130
